FAERS Safety Report 8565502-5 (Version None)
Quarter: 2012Q3

REPORT INFORMATION
  Report Type: 
  Country: None (occurrence: None)
  Receive Date: 20120803
  Receipt Date: 20120724
  Transmission Date: 20120928
  Serious: Yes (Death, Other)
  Sender: FDA-Public Use
  Company Number: IT-CELGENEUS-083-20785-11010011

PATIENT

DRUGS (19)
  1. DEXAMETHASONE [Suspect]
     Dosage: 40 MILLIGRAM
     Route: 065
  2. BORTEZOMIB [Suspect]
     Dosage: 1.3 MILLIGRAM/SQ. METER
     Route: 065
  3. THALIDOMIDE [Suspect]
     Dosage: 100 MILLIGRAM
     Route: 048
  4. DEXAMETHASONE [Suspect]
     Indication: MULTIPLE MYELOMA
     Dosage: 40 MILLIGRAM
     Route: 065
  5. THALIDOMIDE [Suspect]
     Dosage: 200 MILLIGRAM
     Route: 048
  6. ACYCLOVIR [Concomitant]
     Route: 065
  7. THALIDOMIDE [Suspect]
     Dosage: 50 MILLIGRAM
     Route: 048
  8. DEXAMETHASONE [Suspect]
     Dosage: 40 MILLIGRAM
     Route: 065
  9. MELPHALAN HYDROCHLORIDE [Concomitant]
     Dosage: 200 MILLIGRAM/SQ. METER
     Route: 065
  10. NEUPOGEN [Concomitant]
     Dosage: 5 MICROGRAM/KILOGRAM
     Route: 065
  11. DEXAMETHASONE [Suspect]
     Dosage: 40 MILLIGRAM
     Route: 065
  12. BORTEZOMIB [Suspect]
     Indication: MULTIPLE MYELOMA
     Dosage: 1.3 MILLIGRAM/SQ. METER
     Route: 065
  13. BORTEZOMIB [Suspect]
     Dosage: 1 MILLIGRAM/SQ. METER
     Route: 065
  14. THALIDOMIDE [Suspect]
     Dosage: 100 MILLIGRAM
     Route: 048
  15. DEXAMETHASONE [Suspect]
     Dosage: 40 MILLIGRAM
     Route: 065
  16. BORTEZOMIB [Suspect]
     Dosage: .7 MILLIGRAM/SQ. METER
     Route: 065
  17. NEUPOGEN [Concomitant]
     Dosage: 10 MICROGRAM/KILOGRAM
     Route: 065
  18. THALIDOMIDE [Suspect]
     Indication: MULTIPLE MYELOMA
     Dosage: 100 MILLIGRAM
     Route: 048
  19. CYCLOPHOSPHAMIDE [Concomitant]
     Dosage: 4 G/M2
     Route: 065

REACTIONS (17)
  - DEATH [None]
  - PANCREATITIS [None]
  - PYREXIA [None]
  - GASTROINTESTINAL DISORDER [None]
  - RASH [None]
  - DISEASE PROGRESSION [None]
  - LIVER DISORDER [None]
  - THROMBOCYTOPENIA [None]
  - INFECTION [None]
  - NEUROPATHY PERIPHERAL [None]
  - HYPERGLYCAEMIA [None]
  - DEEP VEIN THROMBOSIS [None]
  - CONSTIPATION [None]
  - TOXICITY TO VARIOUS AGENTS [None]
  - HERPES ZOSTER [None]
  - OEDEMA [None]
  - CARDIAC DISORDER [None]
